FAERS Safety Report 12080334 (Version 1)
Quarter: 2016Q1

REPORT INFORMATION
  Report Type: Spontaneous
  Country: US (occurrence: None)
  Receive Date: 20160212
  Receipt Date: 20160212
  Transmission Date: 20160526
  Serious: Yes (Hospitalization)
  Sender: FDA-Public Use
  Company Number: None

PATIENT
  Age: 45 Year
  Sex: Female

DRUGS (6)
  1. CIPROFLOXACIN. [Concomitant]
     Active Substance: CIPROFLOXACIN
  2. FENTANYL. [Concomitant]
     Active Substance: FENTANYL
  3. GABAPENTIN. [Concomitant]
     Active Substance: GABAPENTIN
  4. CAPECITABINE 500MG TAB TEVA [Suspect]
     Active Substance: CAPECITABINE
     Indication: RECTAL CANCER
     Dosage: 1500MG FOR 14 DAY?TWICE DAILY?PO
     Route: 048
     Dates: start: 20151211
  5. MORPHINE [Concomitant]
     Active Substance: MORPHINE
  6. MELOXICAM. [Concomitant]
     Active Substance: MELOXICAM

REACTIONS (4)
  - Gastric disorder [None]
  - Dysphagia [None]
  - Vomiting [None]
  - Large intestinal obstruction [None]

NARRATIVE: CASE EVENT DATE: 20160129
